FAERS Safety Report 8110404-1 (Version None)
Quarter: 2012Q1

REPORT INFORMATION
  Report Type: 
  Country: None (occurrence: None)
  Receive Date: 20120202
  Receipt Date: 20120125
  Transmission Date: 20120608
  Serious: Yes (Other)
  Sender: FDA-Public Use
  Company Number: US-MERCK-1201USA01937

PATIENT
  Sex: Female

DRUGS (1)
  1. IVEMEND [Suspect]
     Route: 041

REACTIONS (3)
  - HYPOTENSION [None]
  - INFUSION SITE REACTION [None]
  - DRUG HYPERSENSITIVITY [None]
